FAERS Safety Report 6968125-4 (Version None)
Quarter: 2010Q3

REPORT INFORMATION
  Report Type: 
  Country: None (occurrence: None)
  Receive Date: 20100907
  Receipt Date: 20100824
  Transmission Date: 20110219
  Serious: Yes (Death)
  Sender: FDA-Public Use
  Company Number: B0608663A

PATIENT
  Age: 70 Year

DRUGS (5)
  1. MELPHALAN [Suspect]
     Indication: LYMPHOMA
  2. ETOPOSIDE [Suspect]
     Indication: LYMPHOMA
  3. FOTEMUSTINE [Suspect]
     Indication: LYMPHOMA
  4. ARA-C [Suspect]
     Indication: LYMPHOMA
  5. NEUPOGEN [Concomitant]
     Route: 058

REACTIONS (1)
  - BACTERIAL INFECTION [None]
